FAERS Safety Report 11099464 (Version 1)
Quarter: 2015Q2

REPORT INFORMATION
  Report Type: Spontaneous
  Country: US (occurrence: US)
  Receive Date: 20150508
  Receipt Date: 20150508
  Transmission Date: 20150821
  Serious: No
  Sender: FDA-Public Use
  Company Number: US-BAYER-2015-200217

PATIENT
  Age: 76 Year
  Sex: Male
  Weight: 118 kg

DRUGS (1)
  1. ALEVE [Suspect]
     Active Substance: NAPROXEN SODIUM
     Indication: BACK PAIN
     Dosage: 2 DF, QD
     Route: 048

REACTIONS (3)
  - Renal function test abnormal [Unknown]
  - Incorrect drug administration duration [None]
  - Drug ineffective [None]
